FAERS Safety Report 13454442 (Version 7)
Quarter: 2018Q4

REPORT INFORMATION
  Report Type: Report from Study
  Country: US (occurrence: US)
  Receive Date: 20170418
  Receipt Date: 20181224
  Transmission Date: 20190204
  Serious: Yes (Other)
  Sender: FDA-Public Use
  Company Number: US-JAZZ-2017-US-003454

PATIENT
  Sex: Female

DRUGS (72)
  1. CREATINE [Suspect]
     Active Substance: CREATINE
     Indication: PRODUCT USED FOR UNKNOWN INDICATION
     Dosage: UNK
  2. DIGESTIVE ENZYME [Concomitant]
     Active Substance: UNSPECIFIED INGREDIENT
  3. L THEANINE [Concomitant]
  4. TAURINE [Concomitant]
     Active Substance: TAURINE
  5. VERAPAMIL [Concomitant]
     Active Substance: VERAPAMIL HYDROCHLORIDE
  6. ACIDOPHILIS [Concomitant]
     Active Substance: LACTOBACILLUS ACIDOPHILUS
  7. L-LYSINE HCL [Concomitant]
  8. MAGNEBIND [Concomitant]
  9. PHENYLALANINE [Concomitant]
     Active Substance: PHENYLALANINE
  10. XYREM [Suspect]
     Active Substance: SODIUM OXYBATE
     Dosage: 3.5 G, BID
     Route: 048
     Dates: start: 201105
  11. DIPHENHYDRAMINE HYDROCHLORIDE. [Concomitant]
     Active Substance: DIPHENHYDRAMINE HYDROCHLORIDE
  12. CIMETIDINE [Concomitant]
     Active Substance: CIMETIDINE
  13. ALPHA LIPOIC ACID [Concomitant]
     Active Substance: .ALPHA.-LIPOIC ACID
  14. CALCIUM CARBASPIRIN [Concomitant]
  15. CURCUMIN [Concomitant]
     Active Substance: CURCUMIN
  16. PROGESTERONE. [Concomitant]
     Active Substance: PROGESTERONE
  17. LYRICA [Concomitant]
     Active Substance: PREGABALIN
  18. HYDROCORTISONE. [Concomitant]
     Active Substance: HYDROCORTISONE
  19. DEXAMETHASONE. [Concomitant]
     Active Substance: DEXAMETHASONE
  20. FLONASE [Suspect]
     Active Substance: FLUTICASONE PROPIONATE
     Indication: PRODUCT USED FOR UNKNOWN INDICATION
     Dosage: UNK, PRN
     Dates: start: 20140912
  21. CROMOLYN SODIUM. [Concomitant]
     Active Substance: CROMOLYN SODIUM
  22. VITAMIN D3 [Concomitant]
     Active Substance: CHOLECALCIFEROL
  23. GLUTATHIONE [Concomitant]
     Active Substance: GLUTATHIONE
  24. RHODIOLA ROSEA [Concomitant]
     Active Substance: HERBALS
  25. KETOCONAZOLE. [Concomitant]
     Active Substance: KETOCONAZOLE
  26. DIHYDROERGOTAMINE [Concomitant]
     Active Substance: DIHYDROERGOTAMINE
  27. DILTIAZEM. [Concomitant]
     Active Substance: DILTIAZEM
  28. FEXOFENADINE HCL [Concomitant]
     Active Substance: FEXOFENADINE HYDROCHLORIDE
  29. YUCCA ROOT [Concomitant]
  30. OXITRIPTAN [Concomitant]
     Active Substance: OXITRIPTAN
  31. MAGNESIUM GLUCEPTATE [Concomitant]
     Active Substance: MAGNESIUM GLUCEPTATE
  32. SUMATRIPTAN SUCCINATE. [Concomitant]
     Active Substance: SUMATRIPTAN SUCCINATE
  33. AMITRIPTYLINE HCL [Concomitant]
     Active Substance: AMITRIPTYLINE
  34. BOSWELLIA SERRATA [Concomitant]
  35. COQ 10 [Concomitant]
     Active Substance: UBIDECARENONE
  36. EPIPEN JR [Concomitant]
     Active Substance: EPINEPHRINE
  37. BIOTIN [Concomitant]
     Active Substance: BIOTIN
  38. AZITHROMYCIN ANHYDROUS. [Concomitant]
     Active Substance: AZITHROMYCIN ANHYDROUS
  39. LORATADINE. [Concomitant]
     Active Substance: LORATADINE
  40. ONDANSETRON ODT DRLA [Concomitant]
     Active Substance: ONDANSETRON
  41. THEANINE [Concomitant]
     Active Substance: THEANINE
  42. ESTRADIOL. [Concomitant]
     Active Substance: ESTRADIOL
  43. FLAXSEED [Concomitant]
     Active Substance: FLAX SEED
  44. NADOLOL. [Concomitant]
     Active Substance: NADOLOL
  45. ALLERGAN [Concomitant]
     Active Substance: PAPAIN
  46. NALTREXONE [Concomitant]
     Active Substance: NALTREXONE
  47. VITAMIN B12 [Concomitant]
     Active Substance: CYANOCOBALAMIN
  48. MINOCYCLINE [Concomitant]
     Active Substance: MINOCYCLINE\MINOCYCLINE HYDROCHLORIDE
  49. FISH OIL [Concomitant]
     Active Substance: FISH OIL
  50. XYREM [Suspect]
     Active Substance: SODIUM OXYBATE
     Indication: NARCOLEPSY
     Dosage: 2.25 G, BID
     Route: 048
     Dates: start: 201007, end: 201007
  51. XYREM [Suspect]
     Active Substance: SODIUM OXYBATE
     Indication: CATAPLEXY
     Dosage: DOSE ADJUSTMENT
     Route: 048
     Dates: start: 201007, end: 201105
  52. FLONASE [Suspect]
     Active Substance: FLUTICASONE PROPIONATE
     Dosage: UNK, QD
  53. ORPHENADRINE [Suspect]
     Active Substance: ORPHENADRINE
     Indication: PRODUCT USED FOR UNKNOWN INDICATION
  54. MIGRANAL [Concomitant]
     Active Substance: DIHYDROERGOTAMINE MESYLATE
  55. SILYBUM MARIANUM [Concomitant]
     Active Substance: DIETARY SUPPLEMENT\HERBALS\MILK THISTLE
  56. MOLYBDENUM [Concomitant]
     Active Substance: MOLYBDENUM
  57. QUERCETIN DIHYDRATE [Concomitant]
  58. SALT [Concomitant]
     Active Substance: SODIUM CHLORIDE
  59. EUTERPE OLERACEA [Concomitant]
  60. NALTREXON [Concomitant]
     Active Substance: NALTREXONE
  61. METHYLCOBALAMIN. [Concomitant]
     Active Substance: METHYLCOBALAMIN
  62. CURCUMA LONGA [Concomitant]
     Active Substance: HERBALS\TURMERIC
  63. OLIVE LEAF EXTRACT [Concomitant]
  64. ASCORBIC ACID. [Concomitant]
     Active Substance: ASCORBIC ACID
  65. CETIRIZINE HCL [Concomitant]
     Active Substance: CETIRIZINE HYDROCHLORIDE
  66. CHLORZOXAZONE. [Concomitant]
     Active Substance: CHLORZOXAZONE
  67. GUAIFENESIN. [Concomitant]
     Active Substance: GUAIFENESIN
  68. L-METHIONINE [Concomitant]
  69. SLIPPERY ELM [Concomitant]
     Active Substance: ELM
  70. VITAMIN B6 [Concomitant]
     Active Substance: PYRIDOXINE HYDROCHLORIDE
  71. GASTROCROM [Concomitant]
     Active Substance: CROMOLYN SODIUM
  72. GLUCOSAMINE [Concomitant]
     Active Substance: GLUCOSAMINE

REACTIONS (17)
  - Stress [Not Recovered/Not Resolved]
  - Anxiety [Recovering/Resolving]
  - Memory impairment [Unknown]
  - Pain [Unknown]
  - Therapeutic response unexpected [Unknown]
  - Oropharyngeal pain [Unknown]
  - Tremor [Recovering/Resolving]
  - Blindness transient [Recovering/Resolving]
  - Drug ineffective [Unknown]
  - Pre-existing condition improved [Unknown]
  - Hysterectomy [Unknown]
  - Malaise [Not Recovered/Not Resolved]
  - Fatigue [Not Recovered/Not Resolved]
  - Nausea [Not Recovered/Not Resolved]
  - Dry mouth [Unknown]
  - Decreased appetite [Not Recovered/Not Resolved]
  - Dizziness [Not Recovered/Not Resolved]

NARRATIVE: CASE EVENT DATE: 2012
